FAERS Safety Report 6810913-9 (Version None)
Quarter: 2010Q2

REPORT INFORMATION
  Report Type: 
  Country: None (occurrence: None)
  Receive Date: 20100630
  Receipt Date: 20081017
  Transmission Date: 20101027
  Serious: No
  Sender: FDA-Public Use
  Company Number: US-PFIZER INC-2008077302

PATIENT
  Sex: Female
  Weight: 95.5 kg

DRUGS (3)
  1. ESTRING [Suspect]
     Indication: OESTROGEN REPLACEMENT THERAPY
     Route: 067
     Dates: start: 20080622
  2. WELLBUTRIN [Concomitant]
     Indication: DEPRESSION
  3. PROZAC [Concomitant]
     Indication: DEPRESSION

REACTIONS (2)
  - DEVICE DIFFICULT TO USE [None]
  - METRORRHAGIA [None]
